FAERS Safety Report 4311314-8 (Version None)
Quarter: 2004Q1

REPORT INFORMATION
  Report Type: 
  Country: None (occurrence: None)
  Receive Date: 20040302
  Receipt Date: 20040112
  Transmission Date: 20041129
  Serious: No
  Sender: FDA-Public Use
  Company Number: 200323420BWH

PATIENT
  Age: 73 Year
  Sex: Male

DRUGS (11)
  1. LEVITRA [Suspect]
     Indication: ERECTILE DYSFUNCTION
     Dosage: 10 MG, PRN, ORAL
     Route: 048
     Dates: start: 20030909
  2. LEVITRA [Suspect]
     Indication: ERECTILE DYSFUNCTION
     Dosage: 10 MG, PRN, ORAL
     Route: 048
     Dates: start: 20030912
  3. VITAMIN E [Concomitant]
  4. SELENIUM TRACE METAL ADDITIVE [Concomitant]
  5. CALCIUM WITH VITAMIN D [Concomitant]
  6. THERAGRAN-M [Concomitant]
  7. METOPROLOL [Concomitant]
  8. NITRGLYCERIN TRANSDERMAL SYSTEM [Concomitant]
  9. ALLOPURINOL [Concomitant]
  10. ISORDIL [Concomitant]
  11. VIAGRA [Concomitant]

REACTIONS (1)
  - ERECTILE DYSFUNCTION [None]
